FAERS Safety Report 21976850 (Version 1)
Quarter: 2023Q1

REPORT INFORMATION
  Report Type: Spontaneous
  Country: FR (occurrence: FR)
  Receive Date: 20230210
  Receipt Date: 20230210
  Transmission Date: 20230417
  Serious: Yes (Life-Threatening, Hospitalization, Other)
  Sender: FDA-Public Use
  Company Number: FR-AFSSAPS-CN2023000093

PATIENT
  Age: 88 Year
  Sex: Male
  Weight: 56 kg

DRUGS (8)
  1. PERINDOPRIL [Suspect]
     Active Substance: PERINDOPRIL
     Indication: Hypertension
     Dosage: 4 MILLIGRAM, ONCE A DAY (4MG IN THE MORNING. LAST TAKEN = 25/01 MORNING)
     Route: 048
     Dates: start: 20221216
  2. AUGMENTIN [Suspect]
     Active Substance: AMOXICILLIN\CLAVULANATE POTASSIUM
     Indication: Lung disorder
     Dosage: 2 DOSAGE FORM, ONCE A DAY (500 / 62.5MG *2 / DAY)
     Route: 042
     Dates: start: 20230125
  3. AUGMENTIN [Suspect]
     Active Substance: AMOXICILLIN\CLAVULANATE POTASSIUM
     Indication: Lung disorder
     Dosage: 3 DOSAGE FORM, ONCE A DAY
     Route: 042
     Dates: start: 20230123
  4. FUROSEMIDE [Suspect]
     Active Substance: FUROSEMIDE
     Indication: Hypertension
     Dosage: 40 MILLIGRAM, ONCE A DAY (1 TAB IN THE MORNING. LAST TAKEN ON 01/27.)
     Route: 048
     Dates: start: 20230117
  5. LOXAPINE [Concomitant]
     Active Substance: LOXAPINE
     Indication: Cognitive disorder
     Dosage: 10 GTT DROPS (10 DROPS IF NEEDED - MAX 100 DROPS PER DAY
     Route: 048
     Dates: start: 20230113
  6. KARDEGIC [Concomitant]
     Active Substance: ASPIRIN DL-LYSINE
     Indication: Arteriosclerosis
     Dosage: 75 MILLIGRAM, ONCE A DAY
     Route: 048
  7. AMLODIPINE BESYLATE [Concomitant]
     Active Substance: AMLODIPINE BESYLATE
     Indication: Hypertension
     Dosage: 10 MILLIGRAM, ONCE A DAY ( 5 MG MORNING AND EVENING)
     Route: 048
     Dates: start: 20221222
  8. URAPIDIL [Concomitant]
     Active Substance: URAPIDIL
     Indication: Hypertension
     Dosage: 120 MILLIGRAM, ONCE A DAY (2 CAPSULES OF 30 MG MORNING AND EVENING)
     Route: 048
     Dates: start: 20230102

REACTIONS (2)
  - Acute kidney injury [Not Recovered/Not Resolved]
  - Condition aggravated [Not Recovered/Not Resolved]

NARRATIVE: CASE EVENT DATE: 20230125
